FAERS Safety Report 8884968 (Version 1)
Quarter: 2012Q4

REPORT INFORMATION
  Report Type: 
  Country: US (occurrence: US)
  Receive Date: 20121102
  Receipt Date: 20121102
  Transmission Date: 20130627
  Serious: Yes (Life-Threatening, Hospitalization, Other)
  Sender: FDA-Public Use
  Company Number: US-ACTELION-A-US2012-65931

PATIENT
  Age: 69 Year
  Sex: Female

DRUGS (7)
  1. TRACLEER [Suspect]
     Indication: PULMONARY ARTERIAL HYPERTENSION
     Dosage: UNK
     Route: 048
     Dates: start: 20090512
  2. SILDENAFIL [Concomitant]
  3. COUMADIN [Concomitant]
  4. FLOLAN [Concomitant]
  5. LASIX [Concomitant]
  6. DIGOXIN [Concomitant]
  7. OMEPRAZOLE [Concomitant]

REACTIONS (6)
  - Irritable bowel syndrome [Recovered/Resolved]
  - Abdominal pain [Recovered/Resolved]
  - Bronchopulmonary aspergillosis [Recovering/Resolving]
  - Lung infiltration [Recovering/Resolving]
  - International normalised ratio abnormal [Recovering/Resolving]
  - Pneumonia [None]
